FAERS Safety Report 7618434-0 (Version None)
Quarter: 2011Q3

REPORT INFORMATION
  Report Type: 
  Country: None (occurrence: None)
  Receive Date: 20110718
  Receipt Date: 20110711
  Transmission Date: 20111222
  Serious: Yes (Hospitalization)
  Sender: FDA-Public Use
  Company Number: US-SANOFI-AVENTIS-2011SA044616

PATIENT
  Age: 61 Year
  Sex: Male

DRUGS (2)
  1. PLAVIX [Suspect]
     Indication: STENT PLACEMENT
     Route: 048
     Dates: start: 20101018
  2. ASPIRIN [Suspect]
     Dates: start: 20101017

REACTIONS (1)
  - IN-STENT CORONARY ARTERY RESTENOSIS [None]
